FAERS Safety Report 11949110 (Version 1)
Quarter: 2016Q1

REPORT INFORMATION
  Report Type: Spontaneous
  Country: CA (occurrence: CA)
  Receive Date: 20160125
  Receipt Date: 20160125
  Transmission Date: 20160526
  Serious: Yes (Hospitalization)
  Sender: FDA-Public Use
  Company Number: CA-MYLANLABS-2016M1002744

PATIENT

DRUGS (5)
  1. SEVOFLURANE. [Suspect]
     Active Substance: SEVOFLURANE
     Indication: INDUCTION OF ANAESTHESIA
     Dosage: INCREMENTAL INCREASE FROM 2 TO 8%
     Route: 055
  2. PROPOFOL. [Suspect]
     Active Substance: PROPOFOL
     Indication: ANAESTHESIA
     Dosage: 100MG
     Route: 040
  3. FENTANYL. [Suspect]
     Active Substance: FENTANYL
     Indication: ANAESTHESIA
     Dosage: 50MICROG
     Route: 042
  4. MIDAZOLAM [Concomitant]
     Active Substance: MIDAZOLAM\MIDAZOLAM HYDROCHLORIDE
     Dosage: 0.5MG/KG
     Route: 048
  5. ANESOXYN [Suspect]
     Active Substance: NITROUS OXIDE\OXYGEN
     Indication: INDUCTION OF ANAESTHESIA
     Dosage: 50% MIXTURE
     Route: 055

REACTIONS (1)
  - Extrasystoles [Not Recovered/Not Resolved]
